FAERS Safety Report 5879989-X (Version None)
Quarter: 2008Q3

REPORT INFORMATION
  Report Type: 
  Country: None (occurrence: None)
  Receive Date: 20080912
  Receipt Date: 20080911
  Transmission Date: 20090109
  Serious: Yes (Life-Threatening, Hospitalization, Other)
  Sender: FDA-Public Use
  Company Number: GB-PFIZER INC-2008053215

PATIENT
  Age: 79 Year
  Sex: Male

DRUGS (10)
  1. FLUCONAZOLE [Suspect]
  2. SIMVASTATIN [Interacting]
  3. GOSERELIN [Concomitant]
  4. INSULIN [Concomitant]
     Indication: DIABETES MELLITUS
  5. LISINOPRIL [Concomitant]
     Indication: HYPERTENSION
  6. MOMETASONE FUROATE [Concomitant]
     Route: 055
  7. TERAZOSIN [Concomitant]
  8. THIAMINE HCL [Concomitant]
  9. TOLTERODINE TARTRATE [Concomitant]
  10. FOLIC ACID [Concomitant]

REACTIONS (11)
  - ASTHENIA [None]
  - BLOOD CREATINE PHOSPHOKINASE INCREASED [None]
  - DRUG INTERACTION [None]
  - DYSPHAGIA [None]
  - MASTICATION DISORDER [None]
  - MYOGLOBINURIA [None]
  - NAUSEA [None]
  - RENAL FAILURE ACUTE [None]
  - RHABDOMYOLYSIS [None]
  - SPEECH DISORDER [None]
  - VOMITING [None]
